FAERS Safety Report 10389678 (Version 1)
Quarter: 2014Q1

REPORT INFORMATION
  Report Type: Spontaneous
  Country: US (occurrence: None)
  Receive Date: 20140306
  Receipt Date: 20140306
  Transmission Date: 20141002
  Serious: Yes (Other)
  Sender: FDA-Public Use
  Company Number: 163-21880-13122591

PATIENT
  Age: 64 Year
  Sex: Female
  Weight: 65.77 kg

DRUGS (2)
  1. REVLIMID (LENALIDOMIDE) (10 MILLIGRAM, CAPSULES) [Suspect]
     Indication: CHRONIC LYMPHOCYTIC LEUKAEMIA
     Dosage: 25 IN 25 D
     Route: 048
     Dates: start: 20131201, end: 20131205
  2. EXJADE (DEFERASIROX) [Concomitant]

REACTIONS (8)
  - Platelet count decreased [None]
  - Lip discolouration [None]
  - Gait disturbance [None]
  - Stomatitis [None]
  - Pyrexia [None]
  - Diarrhoea [None]
  - Tremor [None]
  - Drug intolerance [None]
